FAERS Safety Report 5370051-1 (Version None)
Quarter: 2007Q2

REPORT INFORMATION
  Report Type: 
  Country: None (occurrence: None)
  Receive Date: 20070626
  Receipt Date: 20070615
  Transmission Date: 20071010
  Serious: Yes (Other)
  Sender: FDA-Public Use
  Company Number: US-JNJFOC-20070601013

PATIENT
  Sex: Female
  Weight: 58.06 kg

DRUGS (7)
  1. REMICADE [Suspect]
     Route: 042
     Dates: end: 20070128
  2. REMICADE [Suspect]
     Route: 042
     Dates: end: 20070128
  3. REMICADE [Suspect]
     Route: 042
     Dates: end: 20070128
  4. REMICADE [Suspect]
     Indication: COLITIS ULCERATIVE
     Route: 042
     Dates: end: 20070128
  5. AZATHIOPRINE [Concomitant]
  6. PREDNISONE TAB [Concomitant]
  7. SULFASALAZINE [Concomitant]

REACTIONS (2)
  - COLITIS ULCERATIVE [None]
  - DRUG INEFFECTIVE [None]
